FAERS Safety Report 24345008 (Version 3)
Quarter: 2025Q2

REPORT INFORMATION
  Report Type: Spontaneous
  Country: US (occurrence: US)
  Receive Date: 20240920
  Receipt Date: 20250417
  Transmission Date: 20250717
  Serious: No
  Sender: BLUEPRINT MEDICINES
  Company Number: US-Blueprint Medicines Corporation-4807

PATIENT
  Age: 63 Year
  Sex: Male

DRUGS (5)
  1. AYVAKIT [Suspect]
     Active Substance: AVAPRITINIB
     Indication: Systemic mastocytosis
     Route: 048
     Dates: start: 20240831
  2. TAMSULOSIN HYDROCHLORIDE [Concomitant]
     Active Substance: TAMSULOSIN HYDROCHLORIDE
     Indication: Product used for unknown indication
     Route: 065
  3. DIETARY SUPPLEMENT [Concomitant]
     Active Substance: DIETARY SUPPLEMENT
     Indication: Product used for unknown indication
     Route: 065
  4. Ox bile supplement [Concomitant]
     Indication: Product used for unknown indication
     Route: 065
  5. CROMOLYN [Concomitant]
     Active Substance: CROMOLYN
     Indication: Product used for unknown indication
     Route: 065

REACTIONS (9)
  - Hot flush [Unknown]
  - Hypersomnia [Unknown]
  - Sleep disorder [Unknown]
  - Nausea [Unknown]
  - Bradycardia [Unknown]
  - Asthenia [Unknown]
  - Depression [Unknown]
  - Insomnia [Unknown]
  - Drug ineffective [Unknown]
